FAERS Safety Report 10450169 (Version 2)
Quarter: 2014Q3

REPORT INFORMATION
  Report Type: Spontaneous
  Country: US (occurrence: US)
  Receive Date: 20140912
  Receipt Date: 20140917
  Transmission Date: 20150326
  Serious: No
  Sender: FDA-Public Use
  Company Number: US-PFIZER INC-2014251163

PATIENT
  Age: 59 Year
  Sex: Female
  Weight: 73.47 kg

DRUGS (9)
  1. JANUVIA [Concomitant]
     Active Substance: SITAGLIPTIN PHOSPHATE
     Indication: DIABETES MELLITUS
     Dosage: UNK, 1X/DAY
  2. PREMPRO [Concomitant]
     Active Substance: ESTROGENS, CONJUGATED\MEDROXYPROGESTERONE ACETATE
     Dosage: 0.625 MG, UNK
  3. HYDROCHLOROTHIAZIDE/TRIAMTERENE [Concomitant]
     Indication: HYPERTENSION
     Dosage: 25 MG/37.5 MG, 1X/DAY
  4. ATORVASTATIN [Concomitant]
     Active Substance: ATORVASTATIN
     Indication: BLOOD CHOLESTEROL INCREASED
     Dosage: 40 MG, UNK
  5. GLIPIZIDE. [Suspect]
     Active Substance: GLIPIZIDE
     Dosage: 5 MG, 1X/DAY
     Route: 048
  6. LOSARTAN [Concomitant]
     Active Substance: LOSARTAN
     Indication: HYPERTENSION
     Dosage: 50 MG, 1X/DAY
  7. GLIPIZIDE. [Suspect]
     Active Substance: GLIPIZIDE
     Indication: DIABETES MELLITUS
     Dosage: 2.5 MG, 1X/DAY
     Route: 048
  8. GLIPIZIDE. [Suspect]
     Active Substance: GLIPIZIDE
     Dosage: 5 MG, 2X/DAY
     Route: 048
  9. BISOPROLOL FUMARATE/HYDROCHLOROTHIAZIDE [Concomitant]
     Indication: HYPERTENSION
     Dosage: 5 MG/6.25 MG, 1X/DAY

REACTIONS (1)
  - Drug ineffective [Unknown]
